FAERS Safety Report 8127901-5 (Version None)
Quarter: 2012Q1

REPORT INFORMATION
  Report Type: 
  Country: None (occurrence: None)
  Receive Date: 20120210
  Receipt Date: 20120202
  Transmission Date: 20120608
  Serious: Yes (Hospitalization, Other)
  Sender: FDA-Public Use
  Company Number: ES-MPIJNJ-2011-06617

PATIENT

DRUGS (7)
  1. ENOXAPARIN [Concomitant]
     Dosage: UNK
     Dates: start: 20110603, end: 20111006
  2. MELPHALAN HYDROCHLORIDE [Concomitant]
     Indication: MULTIPLE MYELOMA
     Dosage: UNK
     Dates: start: 20111124, end: 20111204
  3. VELCADE [Suspect]
     Indication: MULTIPLE MYELOMA
     Dosage: UNK
     Route: 065
     Dates: start: 20111124, end: 20111204
  4. VANCOMYCIN [Concomitant]
     Dosage: UNK
     Dates: start: 20111205, end: 20111214
  5. FILGRASTIM [Concomitant]
     Dosage: UNK
     Dates: start: 20110604, end: 20111212
  6. ACYCLOVIR [Concomitant]
     Dosage: UNK
     Dates: start: 20110504, end: 20111222
  7. BACTRIM [Concomitant]
     Dosage: UNK
     Dates: start: 20110504, end: 20111222

REACTIONS (1)
  - THROMBOCYTOPENIA [None]
